FAERS Safety Report 21251160 (Version 1)
Quarter: 2022Q3

REPORT INFORMATION
  Report Type: Spontaneous
  Country: CA (occurrence: CA)
  Receive Date: 20220824
  Receipt Date: 20220824
  Transmission Date: 20221027
  Serious: Yes (Other)
  Sender: FDA-Public Use
  Company Number: CA-JNJFOC-20220845938

PATIENT
  Age: 32 Year
  Sex: Male

DRUGS (1)
  1. REMICADE [Suspect]
     Active Substance: INFLIXIMAB
     Indication: Crohn^s disease
     Dosage: REDO THE INDUCTION AT 10MG / KG AND CONTINUE AT 10MG / KG Q 6 WEEKS AS HE TOOK BEFORE AND PLEASE DO
     Route: 041

REACTIONS (3)
  - Lip neoplasm malignant stage unspecified [Unknown]
  - Off label use [Unknown]
  - Incorrect drug administration rate [Unknown]
